FAERS Safety Report 14626197 (Version 1)
Quarter: 2018Q1

REPORT INFORMATION
  Report Type: Spontaneous
  Country: KR (occurrence: KR)
  Receive Date: 20180312
  Receipt Date: 20180312
  Transmission Date: 20180509
  Serious: Yes (Other)
  Sender: FDA-Public Use
  Company Number: KR-ASTRAZENECA-2018SE30400

PATIENT
  Sex: Male

DRUGS (7)
  1. HERBEN [Concomitant]
     Active Substance: DILTIAZEM HYDROCHLORIDE
  2. CRESTOR [Suspect]
     Active Substance: ROSUVASTATIN CALCIUM
     Route: 048
  3. GPIIB/IIIA INHIBITOR [Suspect]
     Active Substance: UNSPECIFIED INGREDIENT
     Route: 065
  4. RABEPRAZOLE SODIUM. [Concomitant]
     Active Substance: RABEPRAZOLE SODIUM
  5. URSA [Concomitant]
     Active Substance: URSODIOL
  6. BRILINTA [Suspect]
     Active Substance: TICAGRELOR
     Route: 048
  7. VASTINAN [Concomitant]
     Active Substance: TRIMETAZIDINE DIHYDROCHLORIDE

REACTIONS (1)
  - Thrombocytopenia [Recovered/Resolved]
